FAERS Safety Report 4840416-2 (Version None)
Quarter: 2005Q4

REPORT INFORMATION
  Report Type: 
  Country: None (occurrence: None)
  Receive Date: 20051031
  Receipt Date: 20050831
  Transmission Date: 20060501
  Serious: Yes (Hospitalization)
  Sender: FDA-Public Use
  Company Number: 200516430US

PATIENT
  Age: 48 Year
  Sex: Female

DRUGS (3)
  1. KETEK [Suspect]
  2. ZYRTEC [Concomitant]
  3. PENTOXYVERINE TANNATE/MEPYRAMINE TANNATE/PHENYLEPHRINE TANNATE [Concomitant]

REACTIONS (3)
  - ANGIONEUROTIC OEDEMA [None]
  - COUGH [None]
  - RESPIRATORY DISORDER [None]
